FAERS Safety Report 9513415 (Version 1)
Quarter: 2013Q3

REPORT INFORMATION
  Report Type: Not Available
  Country: US (occurrence: US)
  Receive Date: 20130910
  Receipt Date: 20130910
  Transmission Date: 20140515
  Serious: No
  Sender: FDA-Public Use
  Company Number: US-TARO-2012P1055910

PATIENT
  Age: 93 Year
  Sex: Female
  Weight: 65.77 kg

DRUGS (8)
  1. WARFARIN SODIUM TABLETS USP 7.5MG [Suspect]
     Indication: ATRIAL FIBRILLATION
     Dates: start: 201207
  2. WARFARIN SODIUM TABLETS USP 7.5MG [Suspect]
     Indication: ATRIAL FIBRILLATION
     Route: 048
     Dates: start: 201207
  3. WARFARIN SODIUM TABLETS USP 7.5MG [Suspect]
     Indication: ATRIAL FIBRILLATION
     Route: 048
  4. WARFARIN SODIUM TABLETS USP 7.5MG [Suspect]
     Indication: ATRIAL FIBRILLATION
     Route: 048
  5. WARFARIN SODIUM TABLETS USP 7.5MG [Suspect]
     Indication: ATRIAL FIBRILLATION
     Route: 048
  6. WARFARIN SODIUM TABLETS USP 7.5MG [Suspect]
     Indication: ATRIAL FIBRILLATION
     Route: 048
  7. LANOXIN [Concomitant]
  8. LEVOTHYROXINE [Concomitant]

REACTIONS (1)
  - International normalised ratio fluctuation [Not Recovered/Not Resolved]
